FAERS Safety Report 4956279-0 (Version None)
Quarter: 2006Q1

REPORT INFORMATION
  Report Type: 
  Country: None (occurrence: None)
  Receive Date: 20060323
  Receipt Date: 20060310
  Transmission Date: 20060701
  Serious: Yes (Hospitalization)
  Sender: FDA-Public Use
  Company Number: 2006026571

PATIENT
  Age: 51 Year
  Sex: Female

DRUGS (19)
  1. FLUCONAZOLE [Suspect]
     Indication: ILL-DEFINED DISORDER
  2. HYDROCORTISONE [Suspect]
     Indication: ILL-DEFINED DISORDER
  3. VALPROATE SODIUM [Suspect]
     Indication: ILL-DEFINED DISORDER
  4. LEVOTHYROXINE SODIUM [Suspect]
     Indication: ILL-DEFINED DISORDER
  5. CLOZAPINE [Concomitant]
  6. CIPROFLOXACIN [Suspect]
     Indication: ILL-DEFINED DISORDER
  7. RANITIDINE HYDROCHLORIDE [Suspect]
     Indication: ILL-DEFINED DISORDER
  8. FENTANYL [Suspect]
     Indication: ILL-DEFINED DISORDER
  9. ACETAMINOPHEN [Suspect]
     Indication: ILL-DEFINED DISORDER
  10. AMISULPRIDE [Concomitant]
  11. LITHIUM [Concomitant]
  12. LACTULOSE [Concomitant]
  13. MIDAZOLAM [Concomitant]
  14. PROPOFOL [Concomitant]
  15. NOREPINEPHRINE [Concomitant]
  16. POTASSIUM [Concomitant]
  17. INSULIN [Concomitant]
  18. HEPARIN [Concomitant]
  19. ENOXAPARIN SODIUM [Concomitant]

REACTIONS (1)
  - LOSS OF CONSCIOUSNESS [None]
